FAERS Safety Report 5476810-9 (Version None)
Quarter: 2007Q4

REPORT INFORMATION
  Report Type: 
  Country: None (occurrence: None)
  Receive Date: 20071004
  Receipt Date: 20070922
  Transmission Date: 20080405
  Serious: Yes (Other)
  Sender: FDA-Public Use
  Company Number: IT-BAYER-200715624GDS

PATIENT
  Age: 58 Year
  Sex: Female

DRUGS (1)
  1. CIPROXIN [Suspect]
     Indication: ANTIBIOTIC PROPHYLAXIS
     Route: 048
     Dates: start: 20070916, end: 20070916

REACTIONS (1)
  - OBSTRUCTIVE AIRWAYS DISORDER [None]
